FAERS Safety Report 25240651 (Version 1)
Quarter: 2025Q2

REPORT INFORMATION
  Report Type: Spontaneous
  Country: US (occurrence: None)
  Receive Date: 20250425
  Receipt Date: 20250425
  Transmission Date: 20250716
  Serious: Yes (Hospitalization)
  Sender: FDA-CTU
  Company Number: None

PATIENT
  Age: 48 Year
  Sex: Male
  Weight: 133.4 kg

DRUGS (17)
  1. OZEMPIC [Suspect]
     Active Substance: SEMAGLUTIDE
     Indication: Weight decreased
     Route: 058
     Dates: start: 20240801
  2. OZEMPIC [Suspect]
     Active Substance: SEMAGLUTIDE
     Indication: Type 2 diabetes mellitus
  3. ACETAMINOPHEN [Concomitant]
     Active Substance: ACETAMINOPHEN
  4. ALBUTEROL [Concomitant]
     Active Substance: ALBUTEROL
  5. ASPIRIN [Concomitant]
     Active Substance: ASPIRIN
  6. DICLOFENAC SODIUM [Concomitant]
     Active Substance: DICLOFENAC SODIUM
  7. EZETIMIBE [Concomitant]
     Active Substance: EZETIMIBE
  8. KETOROLAC [Concomitant]
     Active Substance: KETOROLAC TROMETHAMINE
  9. LOSARTAN [Concomitant]
     Active Substance: LOSARTAN
  10. METHOCARBAMOL [Concomitant]
     Active Substance: METHOCARBAMOL
  11. METOPROLOL TARTRATE [Concomitant]
     Active Substance: METOPROLOL TARTRATE
  12. ONDANSETRON [Concomitant]
     Active Substance: ONDANSETRON
  13. OXYCODONE [Concomitant]
     Active Substance: OXYCODONE
  14. ROSUVASTATIN [Concomitant]
     Active Substance: ROSUVASTATIN
  15. TESTOSTERONE [Concomitant]
     Active Substance: TESTOSTERONE
  16. VALACYCLOVIR [Concomitant]
     Active Substance: VALACYCLOVIR HYDROCHLORIDE
  17. VENLAFAXINE [Concomitant]
     Active Substance: VENLAFAXINE HYDROCHLORIDE

REACTIONS (2)
  - Blindness unilateral [None]
  - Optic ischaemic neuropathy [None]

NARRATIVE: CASE EVENT DATE: 20250425
